FAERS Safety Report 16893852 (Version 2)
Quarter: 2019Q4

REPORT INFORMATION
  Report Type: Spontaneous
  Country: US (occurrence: US)
  Receive Date: 20191008
  Receipt Date: 20191202
  Transmission Date: 20200122
  Serious: Yes (Hospitalization)
  Sender: FDA-Public Use
  Company Number: US-ULTRAGENYX PHARMACEUTICAL INC.-US-UGNX-19-00143

PATIENT
  Age: 23 Year
  Sex: Male
  Weight: 43.13 kg

DRUGS (3)
  1. MEPSEVII [Suspect]
     Active Substance: VESTRONIDASE ALFA-VJBK
     Indication: MUCOPOLYSACCHARIDOSIS VII
     Dosage: 10 MG/5ML SINGLE DOSE VIAL (SDV)
     Route: 042
     Dates: start: 20180602
  2. MEPSEVII [Suspect]
     Active Substance: VESTRONIDASE ALFA-VJBK
     Route: 042
  3. MEPSEVII [Suspect]
     Active Substance: VESTRONIDASE ALFA-VJBK

REACTIONS (1)
  - Acute respiratory failure [Unknown]

NARRATIVE: CASE EVENT DATE: 20190905
